FAERS Safety Report 6647854-6 (Version None)
Quarter: 2010Q1

REPORT INFORMATION
  Report Type: 
  Country: None (occurrence: None)
  Receive Date: 20100324
  Receipt Date: 20100315
  Transmission Date: 20100710
  Serious: Yes (Other)
  Sender: FDA-Public Use
  Company Number: CA-JNJFOC-20100210286

PATIENT
  Sex: Female

DRUGS (2)
  1. ORTHO TRI-CYCLEN LO [Suspect]
     Indication: DRUG USE FOR UNKNOWN INDICATION
     Route: 048
  2. APO-SULFATRIM [Interacting]
     Indication: CYSTITIS
     Route: 065

REACTIONS (3)
  - CYSTITIS [None]
  - DRUG INTERACTION [None]
  - METRORRHAGIA [None]
